FAERS Safety Report 8573503 (Version 2)
Quarter: 2013Q3

REPORT INFORMATION
  Report Type: Spontaneous
  Country: US (occurrence: US)
  Receive Date: 20120522
  Receipt Date: 20130816
  Transmission Date: 20140515
  Serious: Yes (Hospitalization)
  Sender: FDA-Public Use
  Company Number: US-ASTRAZENECA-2012SE31014

PATIENT
  Age: 64 Year
  Sex: Female
  Weight: 101.2 kg

DRUGS (4)
  1. NEXIUM [Suspect]
     Indication: ULCER
     Route: 048
     Dates: start: 20120407, end: 20130209
  2. LIPITOR [Concomitant]
     Indication: BLOOD CHOLESTEROL ABNORMAL
     Route: 048
     Dates: start: 201204
  3. LOSARTAN [Concomitant]
     Indication: HYPERTENSION
  4. METFORMIN [Concomitant]
     Indication: DIABETES MELLITUS
     Route: 048
     Dates: start: 2007

REACTIONS (3)
  - Ulcer [Unknown]
  - Dyspepsia [Unknown]
  - Intentional drug misuse [Unknown]
